FAERS Safety Report 9435114 (Version 3)
Quarter: 2013Q4

REPORT INFORMATION
  Report Type: Spontaneous
  Country: AR (occurrence: AR)
  Receive Date: 20130801
  Receipt Date: 20131014
  Transmission Date: 20140711
  Serious: Yes (Disabling, Other)
  Sender: FDA-Public Use
  Company Number: AR-PFIZER INC-2013223759

PATIENT
  Age: 55 Year
  Sex: Female

DRUGS (3)
  1. RAPAMUNE [Suspect]
     Indication: RENAL TRANSPLANT
     Dosage: 1 MG, 1X/DAY
     Dates: start: 20030109
  2. RAPAMUNE [Suspect]
     Indication: IMMUNOSUPPRESSION
  3. DELTISONA B [Concomitant]
     Dosage: UNK
     Route: 048
     Dates: start: 2003

REACTIONS (2)
  - Diabetes mellitus [Not Recovered/Not Resolved]
  - Skin ulcer haemorrhage [Not Recovered/Not Resolved]
